FAERS Safety Report 7527235-3 (Version None)
Quarter: 2011Q2

REPORT INFORMATION
  Report Type: 
  Country: None (occurrence: None)
  Receive Date: 20110607
  Receipt Date: 20110602
  Transmission Date: 20111010
  Serious: No
  Sender: FDA-Public Use
  Company Number: US-BIOGENIDEC-2011BI020458

PATIENT
  Sex: Female

DRUGS (2)
  1. TYSABRI [Suspect]
     Indication: MULTIPLE SCLEROSIS
     Route: 042
     Dates: start: 20110223
  2. TYSABRI [Suspect]
     Route: 042
     Dates: start: 20091028, end: 20101026

REACTIONS (3)
  - FATIGUE [None]
  - BURNING SENSATION [None]
  - PAIN [None]
